FAERS Safety Report 13946817 (Version 1)
Quarter: 2017Q3

REPORT INFORMATION
  Report Type: Spontaneous
  Country: KP (occurrence: US)
  Receive Date: 20170907
  Receipt Date: 20170907
  Transmission Date: 20171128
  Serious: Yes (Other)
  Sender: FDA-Public Use
  Company Number: KP-AMNEAL PHARMACEUTICALS-2017AMN00830

PATIENT

DRUGS (1)
  1. PHENYTOIN SODIUM. [Suspect]
     Active Substance: PHENYTOIN SODIUM
     Dosage: UNK
     Route: 065

REACTIONS (5)
  - Nasopharyngeal reflux [Recovered/Resolved]
  - Sleep apnoea syndrome [Recovered/Resolved]
  - Velopharyngeal incompetence [Recovered/Resolved]
  - Tonsillar hypertrophy [Recovered/Resolved]
  - Dysphagia [Recovered/Resolved]
